FAERS Safety Report 18412954 (Version 4)
Quarter: 2020Q4

REPORT INFORMATION
  Report Type: Report from Study
  Country: US (occurrence: US)
  Receive Date: 20201021
  Receipt Date: 20201211
  Transmission Date: 20210114
  Serious: Yes (Hospitalization)
  Sender: FDA-Public Use
  Company Number: US-JNJFOC-20201016443

PATIENT
  Age: 67 Year
  Sex: Female
  Weight: 74.91 kg

DRUGS (4)
  1. SILDENAFIL CITRATE. [Concomitant]
     Active Substance: SILDENAFIL CITRATE
  2. UPTRAVI [Suspect]
     Active Substance: SELEXIPAG
     Route: 048
  3. UPTRAVI [Suspect]
     Active Substance: SELEXIPAG
     Route: 048
     Dates: start: 20201109
  4. UPTRAVI [Suspect]
     Active Substance: SELEXIPAG
     Indication: PULMONARY ARTERIAL HYPERTENSION
     Route: 048

REACTIONS (12)
  - Arthralgia [Unknown]
  - Nausea [Unknown]
  - Nervousness [Unknown]
  - Pain in extremity [Unknown]
  - Myalgia [Unknown]
  - Bedridden [Unknown]
  - Neck pain [Unknown]
  - Headache [Unknown]
  - Flushing [Recovering/Resolving]
  - Extra dose administered [Unknown]
  - Feeling abnormal [Unknown]
  - Pain in jaw [Recovering/Resolving]

NARRATIVE: CASE EVENT DATE: 20201019
